FAERS Safety Report 23169498 (Version 1)
Quarter: 2023Q4

REPORT INFORMATION
  Report Type: Spontaneous
  Country: US (occurrence: None)
  Receive Date: 20231110
  Receipt Date: 20231110
  Transmission Date: 20240110
  Serious: No
  Sender: FDA-Public Use
  Company Number: 2023A248093

PATIENT
  Sex: Female

DRUGS (1)
  1. BRILINTA [Suspect]
     Active Substance: TICAGRELOR
     Indication: Stent placement
     Route: 048
     Dates: start: 202309

REACTIONS (4)
  - Skin discolouration [Unknown]
  - Lymphorrhoea [Unknown]
  - Dyspnoea [Recovering/Resolving]
  - Contusion [Unknown]
